FAERS Safety Report 11368150 (Version 1)
Quarter: 2015Q3

REPORT INFORMATION
  Report Type: Spontaneous
  Country: US (occurrence: None)
  Receive Date: 20150811
  Receipt Date: 20150811
  Transmission Date: 20151125
  Serious: Yes (Hospitalization)
  Sender: FDA-Public Use
  Company Number: None

PATIENT
  Age: 16 Year
  Sex: Female
  Weight: 30.2 kg

DRUGS (4)
  1. MERCAPTOPURINE. [Suspect]
     Active Substance: MERCAPTOPURINE
     Dates: end: 20120423
  2. PREDNISONE. [Suspect]
     Active Substance: PREDNISONE
     Dates: end: 20120407
  3. VINCRISTINE SULFATE. [Suspect]
     Active Substance: VINCRISTINE SULFATE
     Dates: end: 20120403
  4. METHOTREXATE [Suspect]
     Active Substance: METHOTREXATE
     Dates: end: 20120423

REACTIONS (4)
  - Depression [None]
  - Suicidal ideation [None]
  - Mental status changes [None]
  - Headache [None]

NARRATIVE: CASE EVENT DATE: 20150112
